FAERS Safety Report 21024103 (Version 2)
Quarter: 2022Q3

REPORT INFORMATION
  Report Type: Report from Study
  Country: US (occurrence: US)
  Receive Date: 20220629
  Receipt Date: 20220707
  Transmission Date: 20221026
  Serious: No
  Sender: FDA-Public Use
  Company Number: US-NOVARTISTESTPH-NVSC2022US147608

PATIENT
  Sex: Female

DRUGS (1)
  1. ENTRESTO [Suspect]
     Active Substance: SACUBITRIL\VALSARTAN
     Indication: Product used for unknown indication
     Dosage: 1 DOSAGE FORM, BID (97/103 MG)(STARTED ABOUT 1 YEAR AGO)
     Route: 048

REACTIONS (3)
  - Fatigue [Recovering/Resolving]
  - Headache [Recovering/Resolving]
  - Product dose omission in error [Unknown]
